FAERS Safety Report 8543226 (Version 4)
Quarter: 2013Q3

REPORT INFORMATION
  Report Type: Report from Study
  Country: US (occurrence: US)
  Receive Date: 20120502
  Receipt Date: 20130708
  Transmission Date: 20140515
  Serious: Yes (Hospitalization)
  Sender: FDA-Public Use
  Company Number: US-ELI_LILLY_AND_COMPANY-US201201003945

PATIENT
  Age: 90 Year
  Sex: Female
  Weight: 50.34 kg

DRUGS (17)
  1. TERIPARATIDE [Suspect]
     Indication: OSTEOPOROSIS
     Dosage: 20 UG, QD
     Route: 065
     Dates: start: 2011
  2. TERIPARATIDE [Suspect]
     Dosage: 20 UG, QD
  3. TERIPARATIDE [Suspect]
     Dosage: UNK, QD
     Dates: start: 20130606, end: 20130623
  4. SEROQUEL [Concomitant]
     Dosage: UNK, EACH EVENING
  5. LEVOTHYROXINE [Concomitant]
     Dosage: UNK, QD
  6. FUROSEMIDE [Concomitant]
     Dosage: UNK, QD
  7. METOPROLOL TARTRATE [Concomitant]
     Dosage: UNK, BID
  8. SIMVASTATIN [Concomitant]
  9. OMEPRAZOL [Concomitant]
     Dosage: UNK, QD
  10. VESICARE [Concomitant]
     Dosage: UNK, EACH MORNING
  11. HYDROCODONE [Concomitant]
     Indication: PAIN
     Dosage: UNK, PRN
  12. CENTRUM SILVER [Concomitant]
     Dosage: UNK, EACH MORNING
  13. CITRACAL [Concomitant]
     Dosage: UNK, BID
  14. CELEBREX [Concomitant]
     Dosage: 200 MG, QD
  15. CALTRATE [Concomitant]
     Dosage: 600 MG, UNKNOWN
  16. LIPITOR [Concomitant]
     Dosage: UNK
  17. PRINIVIL [Concomitant]
     Dosage: UNK

REACTIONS (11)
  - Osteoarthritis [Recovering/Resolving]
  - Malaise [Not Recovered/Not Resolved]
  - Pain in extremity [Unknown]
  - Dry mouth [Not Recovered/Not Resolved]
  - Fatigue [Unknown]
  - Constipation [Unknown]
  - Arthralgia [Unknown]
  - Drug dose omission [Recovered/Resolved]
  - Incorrect product storage [Unknown]
  - Inappropriate schedule of drug administration [Unknown]
  - Drug dose omission [Unknown]
